FAERS Safety Report 10201571 (Version 1)
Quarter: 2014Q2

REPORT INFORMATION
  Report Type: Spontaneous
  Country: DE (occurrence: DE)
  Receive Date: 20140528
  Receipt Date: 20140528
  Transmission Date: 20141212
  Serious: Yes (Hospitalization)
  Sender: FDA-Public Use
  Company Number: DE-JNJFOC-20140509566

PATIENT
  Sex: Female

DRUGS (1)
  1. HALOPERIDOL [Suspect]
     Indication: PRODUCT USED FOR UNKNOWN INDICATION
     Route: 048
     Dates: end: 20120815

REACTIONS (7)
  - Sleep disorder [Not Recovered/Not Resolved]
  - Hallucination [Recovered/Resolved]
  - Aggression [Recovering/Resolving]
  - Delusion [Recovering/Resolving]
  - Urinary tract infection [Unknown]
  - Abnormal behaviour [Unknown]
  - Restlessness [Not Recovered/Not Resolved]
